FAERS Safety Report 7052672-3 (Version None)
Quarter: 2010Q4

REPORT INFORMATION
  Report Type: 
  Country: None (occurrence: None)
  Receive Date: 20101008
  Receipt Date: 20101005
  Transmission Date: 20110411
  Serious: Yes (Hospitalization)
  Sender: FDA-Public Use
  Company Number: WAES1004USA01449

PATIENT
  Age: 63 Year
  Sex: Female
  Weight: 92.9874 kg

DRUGS (20)
  1. FOSAMAX [Suspect]
     Indication: OSTEOPOROSIS
     Dosage: 10 MG/DAILY/PO
     Route: 048
     Dates: start: 20020101, end: 20071224
  2. ACTONEL [Suspect]
     Indication: OSTEOPOROSIS
     Dosage: 150 MG/MTH/PO
     Route: 048
     Dates: start: 20090829, end: 20100205
  3. BLINDED THERAPY UNK [Suspect]
     Indication: OSTEOARTHRITIS
     Dosage: IV
     Route: 042
     Dates: start: 20091119
  4. OSTEO-BI-FLEX [Concomitant]
  5. PAXIL [Concomitant]
  6. SYNTHROID [Concomitant]
  7. ZIAC [Concomitant]
  8. ZYRTEC [Concomitant]
  9. AMITRIPTYLINE HYDROCHLORIDE [Concomitant]
  10. ASCORBIC ACID [Concomitant]
  11. ASPIRIN [Concomitant]
  12. BUPROPION HYDROCHLORIDE [Concomitant]
  13. CALCIUM (UNSPECIFIED) [Concomitant]
  14. CHONDROITIN [Concomitant]
  15. FLAXSEED [Concomitant]
  16. GINKGO [Concomitant]
  17. LORAZEPAM [Concomitant]
  18. METFORMIN HCL [Concomitant]
  19. POTASSIUM GLUCONATE TAB [Concomitant]
  20. VITAMINS (UNSPECIFIED) [Concomitant]

REACTIONS (5)
  - FALL [None]
  - FEMUR FRACTURE [None]
  - PATHOLOGICAL FRACTURE [None]
  - STRESS FRACTURE [None]
  - WALKING AID USER [None]
